FAERS Safety Report 6501803-X (Version None)
Quarter: 2009Q4

REPORT INFORMATION
  Report Type: 
  Country: None (occurrence: None)
  Receive Date: 20091216
  Receipt Date: 20090914
  Transmission Date: 20100525
  Serious: No
  Sender: FDA-Public Use
  Company Number: US-AMGEN-KDL364431

PATIENT
  Sex: Female

DRUGS (23)
  1. NEUPOGEN [Suspect]
     Indication: NEUTROPENIA
     Dates: start: 20081118
  2. ARANESP [Suspect]
     Indication: ANAEMIA
     Dates: start: 20090910
  3. MAGNESIUM GLUCONATE [Concomitant]
  4. LOPRESSOR [Concomitant]
  5. LYSINE [Concomitant]
  6. FERROUS SULFATE TAB [Concomitant]
  7. PEPCID [Concomitant]
  8. LOVAZA [Concomitant]
  9. COLACE [Concomitant]
  10. VITAMIN D [Concomitant]
  11. MULTI-VITAMINS [Concomitant]
  12. CALCIUM [Concomitant]
  13. CLONAZEPAM [Concomitant]
  14. DAPSONE [Concomitant]
  15. PREDNISONE [Concomitant]
  16. PROTONIX [Concomitant]
  17. FORTEO [Concomitant]
  18. PROGRAF [Concomitant]
  19. VALCYTET [Concomitant]
  20. NYSTATIN [Concomitant]
  21. UNSPECIFIED OPHTHALMIC PREPARATION [Concomitant]
  22. PULMICORT [Concomitant]
  23. FIBERMED [Concomitant]

REACTIONS (5)
  - BONE PAIN [None]
  - CHILLS [None]
  - INSOMNIA [None]
  - OROPHARYNGEAL PAIN [None]
  - THERAPEUTIC RESPONSE DECREASED [None]
